FAERS Safety Report 8122661-6 (Version None)
Quarter: 2012Q1

REPORT INFORMATION
  Report Type: 
  Country: None (occurrence: None)
  Receive Date: 20120208
  Receipt Date: 20120126
  Transmission Date: 20120608
  Serious: Yes (Hospitalization)
  Sender: FDA-Public Use
  Company Number: US-BIOGENIDEC-2012BI002259

PATIENT
  Age: 42 Year
  Sex: Female

DRUGS (17)
  1. AMBIEN [Concomitant]
     Route: 048
  2. PROVIGIL [Concomitant]
     Route: 048
  3. XANAX [Concomitant]
     Route: 048
  4. TYSABRI [Suspect]
     Indication: MULTIPLE SCLEROSIS
     Route: 042
     Dates: start: 20070307, end: 20120126
  5. AVONEX [Concomitant]
     Dates: start: 20000901
  6. EFFEXOR [Concomitant]
     Indication: ANXIETY
  7. GEODON [Concomitant]
     Indication: ANXIETY
     Route: 048
  8. KLONOPIN [Concomitant]
  9. VITAMIN D [Concomitant]
  10. ASPIRIN [Concomitant]
     Route: 048
  11. FOSAMAX [Concomitant]
     Route: 048
  12. NEURONTIN [Concomitant]
     Route: 048
  13. VITAMIN B-12 [Concomitant]
  14. ZANAFLEX [Concomitant]
     Route: 048
  15. LIDODERM [Concomitant]
     Route: 062
  16. OPANA [Concomitant]
     Route: 048
  17. SUPER B COMPLEX [Concomitant]

REACTIONS (9)
  - HYPONATRAEMIA [None]
  - ARTHRALGIA [None]
  - SPLENOMEGALY [None]
  - DEPRESSION [None]
  - HYPERGLYCAEMIA [None]
  - BILIARY DILATATION [None]
  - FAECES DISCOLOURED [None]
  - ANXIETY [None]
  - MULTIPLE SCLEROSIS RELAPSE [None]
